FAERS Safety Report 21805475 (Version 1)
Quarter: 2023Q1

REPORT INFORMATION
  Report Type: Report from Study
  Country: US (occurrence: US)
  Receive Date: 20230102
  Receipt Date: 20230102
  Transmission Date: 20230418
  Serious: No
  Sender: FDA-Public Use
  Company Number: US-ABBVIE-22K-163-4489121-00

PATIENT
  Sex: Male

DRUGS (1)
  1. IMBRUVICA [Suspect]
     Active Substance: IBRUTINIB
     Indication: Chronic lymphocytic leukaemia
     Dosage: 420 MILLIGRAM
     Route: 048
     Dates: start: 20220608

REACTIONS (6)
  - Emotional distress [Unknown]
  - Oral blood blister [Unknown]
  - Skin haemorrhage [Unknown]
  - Loss of personal independence in daily activities [Unknown]
  - Thrombosis [Unknown]
  - Gastritis [Unknown]

NARRATIVE: CASE EVENT DATE: 20220101
